FAERS Safety Report 9856891 (Version 3)
Quarter: 2014Q1

REPORT INFORMATION
  Report Type: Spontaneous
  Country: IT (occurrence: IT)
  Receive Date: 20140130
  Receipt Date: 20140220
  Transmission Date: 20141002
  Serious: Yes (Other)
  Sender: FDA-Public Use
  Company Number: IT-TEVA-457548ISR

PATIENT
  Age: 40 Year
  Sex: Female
  Weight: 75 kg

DRUGS (2)
  1. CISPLATIN [Suspect]
     Indication: BLADDER CANCER
     Dosage: 120 MG CYCLICAL
     Route: 042
     Dates: start: 20130305
  2. GEMZAR [Suspect]
     Indication: BLADDER CANCER
     Dosage: 1000 MG CYCLICAL. POWDER FOR SOLUTION FOR INFUSION
     Route: 042
     Dates: start: 20130305

REACTIONS (5)
  - Anaemia [Recovered/Resolved]
  - Diarrhoea [Recovered/Resolved]
  - Leukopenia [Recovered/Resolved]
  - Neutropenia [Recovered/Resolved]
  - Pyrexia [Recovered/Resolved]
